FAERS Safety Report 4384412-0 (Version None)
Quarter: 2004Q2

REPORT INFORMATION
  Report Type: 
  Country: None (occurrence: None)
  Receive Date: 20040624
  Receipt Date: 20040419
  Transmission Date: 20050107
  Serious: Yes (Hospitalization, Disabling)
  Sender: FDA-Public Use
  Company Number: CH-GLAXOSMITHKLINE-B0330728A

PATIENT
  Age: 49 Year
  Sex: Female
  Weight: 65 kg

DRUGS (1)
  1. ZYBAN [Suspect]
     Indication: SMOKING CESSATION THERAPY
     Dosage: 150MG PER DAY
     Route: 048
     Dates: start: 20040318, end: 20040404

REACTIONS (6)
  - AMNESIA [None]
  - DEMYELINATION [None]
  - GRAND MAL CONVULSION [None]
  - INCONTINENCE [None]
  - LEUKOENCEPHALOMYELITIS [None]
  - LEUKOENCEPHALOPATHY [None]
